FAERS Safety Report 4773888-2 (Version None)
Quarter: 2005Q3

REPORT INFORMATION
  Report Type: 
  Country: None (occurrence: None)
  Receive Date: 20050919
  Receipt Date: 20050902
  Transmission Date: 20060218
  Serious: Yes (Hospitalization)
  Sender: FDA-Public Use
  Company Number: 12261

PATIENT
  Age: 60 Year
  Sex: Female

DRUGS (2)
  1. PACLITAXEL [Suspect]
     Indication: OVARIAN EPITHELIAL CANCER
     Dosage: 175 MG/M2 PER CYCLE UNK
     Route: 065
  2. CARBOPLATIN [Suspect]
     Indication: OVARIAN EPITHELIAL CANCER
     Dosage: 6 AUC PER CYCLE UNK
     Route: 065

REACTIONS (8)
  - BLOOD CULTURE POSITIVE [None]
  - DISEASE RECURRENCE [None]
  - ESCHERICHIA INFECTION [None]
  - GASTROINTESTINAL DISORDER [None]
  - INTESTINAL DILATATION [None]
  - LEUKOPENIA [None]
  - NEUTROPENIC COLITIS [None]
  - STOMATITIS [None]
